FAERS Safety Report 23531725 (Version 1)
Quarter: 2024Q1

REPORT INFORMATION
  Report Type: Spontaneous
  Country: GB (occurrence: GB)
  Receive Date: 20240216
  Receipt Date: 20240216
  Transmission Date: 20240409
  Serious: Yes (Life-Threatening, Other)
  Sender: FDA-Public Use
  Company Number: GB-PFIZER INC-PV202400021490

PATIENT
  Age: 67 Year
  Sex: Female

DRUGS (3)
  1. PAMIDRONATE DISODIUM [Suspect]
     Active Substance: PAMIDRONATE DISODIUM
     Indication: Hypercalcaemia
     Dosage: 60 MG; IN 250 ML OF 0.9% NORMAL SALINE OVER 4 H
     Route: 042
  2. SODIUM CHLORIDE [Concomitant]
     Active Substance: SODIUM CHLORIDE
     Dosage: IV PAMIDRONATE (60 MG IN 250 ML 0.9% NORMAL SALINE OVER 4 H)
  3. THYROXINE [Concomitant]
     Active Substance: LEVOTHYROXINE
     Indication: Blood thyroid stimulating hormone
     Dosage: 100 UG, DAILY

REACTIONS (2)
  - Myasthenia gravis [Recovering/Resolving]
  - Influenza like illness [Unknown]
